FAERS Safety Report 6399683-9 (Version None)
Quarter: 2009Q4

REPORT INFORMATION
  Report Type: 
  Country: None (occurrence: None)
  Receive Date: 20091014
  Receipt Date: 20091008
  Transmission Date: 20100525
  Serious: Yes (Death)
  Sender: FDA-Public Use
  Company Number: CA-AVENTIS-200921332GDDC

PATIENT
  Age: 66 Year
  Sex: Male

DRUGS (9)
  1. INSULIN GLARGINE [Suspect]
     Route: 058
     Dates: start: 20050915, end: 20091001
  2. OPTIPEN (INSULIN PUMP) [Suspect]
  3. CODE UNBROKEN [Suspect]
     Dates: start: 20050915, end: 20091001
  4. MONICOR [Concomitant]
     Dosage: DOSE QUANTITY: 10
     Dates: start: 20050901, end: 20091001
  5. ALTACE [Concomitant]
     Dosage: DOSE QUANTITY: 10
     Dates: start: 20050901, end: 20091001
  6. PLAVIX [Concomitant]
     Dosage: DOSE QUANTITY: 75
     Dates: start: 20050901, end: 20091001
  7. ASPIRIN [Concomitant]
     Dosage: DOSE QUANTITY: 81
     Dates: start: 20050901, end: 20091001
  8. LIPITOR [Concomitant]
     Dosage: DOSE QUANTITY: 20
     Dates: start: 20050901, end: 20091001
  9. NIACIN [Concomitant]
     Dosage: DOSE QUANTITY: 1500
     Dates: start: 20080901, end: 20091001

REACTIONS (3)
  - HYPOGLYCAEMIC UNCONSCIOUSNESS [None]
  - LOSS OF CONSCIOUSNESS [None]
  - VENTRICULAR FIBRILLATION [None]
